FAERS Safety Report 19552091 (Version 1)
Quarter: 2021Q3

REPORT INFORMATION
  Report Type: Spontaneous
  Country: US (occurrence: US)
  Receive Date: 20210715
  Receipt Date: 20210715
  Transmission Date: 20211014
  Serious: Yes (Hospitalization, Other)
  Sender: FDA-Public Use
  Company Number: US-SCIEGENPHARMA-2020SCILIT00382

PATIENT
  Age: 30 Year
  Sex: Female

DRUGS (1)
  1. LAMOTRIGINE TABLETS [Suspect]
     Active Substance: LAMOTRIGINE
     Indication: BIPOLAR DISORDER
     Route: 065

REACTIONS (7)
  - Areflexia [Unknown]
  - Toxicity to various agents [Recovered/Resolved]
  - Seizure [Unknown]
  - Intracranial pressure increased [Unknown]
  - Overdose [Unknown]
  - Brain oedema [Recovering/Resolving]
  - Encephalopathy [Unknown]
